FAERS Safety Report 7116848-9 (Version None)
Quarter: 2010Q4

REPORT INFORMATION
  Report Type: 
  Country: None (occurrence: None)
  Receive Date: 20101122
  Receipt Date: 20101111
  Transmission Date: 20110411
  Serious: Yes (Disabling, Other)
  Sender: FDA-Public Use
  Company Number: GB-GENZYME-FABR-1001310

PATIENT

DRUGS (7)
  1. FABRAZYME [Suspect]
     Indication: FABRY'S DISEASE
     Dosage: 70 MG, Q2W
     Route: 042
     Dates: start: 20101006
  2. FABRAZYME [Suspect]
     Dosage: 35 MG, Q2W
     Route: 042
     Dates: start: 20100330
  3. FABRAZYME [Suspect]
     Dosage: 70 MG/KG, Q2W
     Route: 042
     Dates: start: 20050301, end: 20090101
  4. ATORVASTATIN [Concomitant]
     Dosage: UNK
  5. VALSARTAN [Concomitant]
     Dosage: UNK
  6. ASPIRIN [Concomitant]
     Dosage: UNK
  7. AMLODIPINE [Concomitant]
     Dosage: UNK

REACTIONS (5)
  - ARRHYTHMIA [None]
  - DISEASE PROGRESSION [None]
  - FATIGUE [None]
  - MALAISE [None]
  - TRANSIENT ISCHAEMIC ATTACK [None]
